FAERS Safety Report 9354459 (Version 2)
Quarter: 2013Q3

REPORT INFORMATION
  Report Type: Spontaneous
  Country: BR (occurrence: BR)
  Receive Date: 20130618
  Receipt Date: 20130924
  Transmission Date: 20140515
  Serious: Yes (Other)
  Sender: FDA-Public Use
  Company Number: BR-ASTRAZENECA-2013SE42255

PATIENT
  Age: 73 Year
  Sex: Female
  Weight: 70 kg

DRUGS (4)
  1. ATENOLOL [Suspect]
     Route: 065
  2. CRESTOR [Suspect]
     Indication: BLOOD CHOLESTEROL INCREASED
     Route: 048
     Dates: start: 2009
  3. DIOVAN HCT [Suspect]
     Dosage: UNKNOWN, DAILY
     Route: 065
  4. INSULIN [Concomitant]
     Indication: DIABETES MELLITUS
     Dates: start: 2003

REACTIONS (2)
  - Blood glucose increased [Recovering/Resolving]
  - Blood cholesterol increased [Unknown]
